FAERS Safety Report 11351374 (Version 1)
Quarter: 2015Q3

REPORT INFORMATION
  Report Type: Spontaneous
  Country: US (occurrence: US)
  Receive Date: 20150807
  Receipt Date: 20150807
  Transmission Date: 20151125
  Serious: No
  Sender: FDA-Public Use
  Company Number: US-JNJFOC-20141115656

PATIENT
  Sex: Female
  Weight: 63.96 kg

DRUGS (7)
  1. MENS ROGAINE EXTRA STRENGTH [Suspect]
     Active Substance: MINOXIDIL
     Route: 061
  2. VITAMIN D [Concomitant]
     Active Substance: CHOLECALCIFEROL
     Indication: ROUTINE HEALTH MAINTENANCE
     Route: 065
  3. OTHER THERAPEUTIC MEDICATION [Concomitant]
     Active Substance: UNSPECIFIED INGREDIENT
     Indication: URINARY TRACT INFECTION
     Route: 065
  4. BABY ASPIRIN [Concomitant]
     Active Substance: ASPIRIN
     Indication: CARDIAC DISORDER
     Route: 065
  5. SIMVASTATIN. [Concomitant]
     Active Substance: SIMVASTATIN
     Indication: BLOOD CHOLESTEROL
     Route: 065
  6. MENS ROGAINE EXTRA STRENGTH [Suspect]
     Active Substance: MINOXIDIL
     Indication: HAIR GROWTH ABNORMAL
     Dosage: HALF CAPFUL ONCE A DAY
     Route: 061
  7. METOPROLOL [Concomitant]
     Active Substance: METOPROLOL
     Indication: CARDIAC DISORDER
     Route: 065

REACTIONS (4)
  - Inappropriate schedule of drug administration [Unknown]
  - Wrong patient received medication [Unknown]
  - Product physical consistency issue [Unknown]
  - Alopecia [Not Recovered/Not Resolved]
